FAERS Safety Report 8521626-X (Version None)
Quarter: 2012Q3

REPORT INFORMATION
  Report Type: 
  Country: None (occurrence: None)
  Receive Date: 20120706
  Receipt Date: 20120622
  Transmission Date: 20120928
  Serious: Yes (Hospitalization)
  Sender: FDA-Public Use
  Company Number: US-2012-10792

PATIENT
  Sex: Male

DRUGS (1)
  1. SAMSCA [Suspect]
     Indication: PRODUCT USED FOR UNKNOWN INDICATION
     Dosage: UNK, UNKNOWN, 60 MG MILLIGRAM(S), DAILY DOSE, UNKNOWN

REACTIONS (3)
  - HYPERNATRAEMIA [None]
  - DRUG DOSE OMISSION [None]
  - OFF LABEL USE [None]
